FAERS Safety Report 19724183 (Version 2)
Quarter: 2021Q3

REPORT INFORMATION
  Report Type: Other
  Country: CA (occurrence: CA)
  Receive Date: 20210820
  Receipt Date: 20210908
  Transmission Date: 20211014
  Serious: Yes (Other)
  Sender: FDA-Public Use
  Company Number: CA-ROCHE-2890804

PATIENT
  Age: 81 Year
  Sex: Male

DRUGS (1)
  1. LUCENTIS [Suspect]
     Active Substance: RANIBIZUMAB
     Indication: NEOVASCULAR AGE-RELATED MACULAR DEGENERATION
     Dosage: UNK
     Route: 031

REACTIONS (3)
  - Disease progression [Unknown]
  - Neovascular age-related macular degeneration [Unknown]
  - Eye disorder [Unknown]

NARRATIVE: CASE EVENT DATE: 20190907
